FAERS Safety Report 6691203-4 (Version None)
Quarter: 2010Q2

REPORT INFORMATION
  Report Type: 
  Country: None (occurrence: None)
  Receive Date: 20100422
  Receipt Date: 20100408
  Transmission Date: 20101027
  Serious: No
  Sender: FDA-Public Use
  Company Number: 2008BI019206

PATIENT
  Sex: Male
  Weight: 74 kg

DRUGS (4)
  1. TYSABRI [Suspect]
     Indication: MULTIPLE SCLEROSIS
     Route: 042
     Dates: start: 20080508, end: 20080707
  2. TYSABRI [Suspect]
     Route: 042
     Dates: start: 20090226
  3. WELLBUTRIN [Concomitant]
  4. NUVIGIL [Concomitant]

REACTIONS (9)
  - DRUG EFFECT DECREASED [None]
  - FALL [None]
  - GAIT DISTURBANCE [None]
  - HYPOAESTHESIA [None]
  - MULTIPLE SCLEROSIS [None]
  - MULTIPLE SCLEROSIS RELAPSE [None]
  - NAUSEA [None]
  - SENSATION OF HEAVINESS [None]
  - SPINAL CORD INJURY [None]
